FAERS Safety Report 9838165 (Version 1)
Quarter: 2013Q4

REPORT INFORMATION
  Report Type: Spontaneous
  Country: US (occurrence: None)
  Receive Date: 20131205
  Receipt Date: 20131205
  Transmission Date: 20140711
  Serious: Yes (Other)
  Sender: FDA-Public Use
  Company Number: 163-POMAL-13092689

PATIENT
  Age: 66 Year
  Sex: Male

DRUGS (9)
  1. POMALYST (POMALIDOMIDE) (4 MILLIGRAM, CAPSULES) [Suspect]
     Indication: PLASMA CELL MYELOMA
     Route: 048
     Dates: start: 201306
  2. FENTANYL (FENTANYL) [Concomitant]
  3. TAMSULOSIN HCL (TAMSULOSIN HYDROCHLORIDE) [Concomitant]
  4. DEXAMETHASONE (DEXAMETHASONE) [Concomitant]
  5. CENTRUM MULTIVITAMIN (CENTRUM) [Concomitant]
  6. LORAZEPAN (LORAZEPAN) [Concomitant]
  7. ACYCLOVUR (ACICLOVIR) [Concomitant]
  8. SULFAMETHOXAXOLE TMP DS (BACTRIM) [Concomitant]
  9. ALLOPURINOL (ALLOPURINOL) [Concomitant]

REACTIONS (2)
  - Atrial fibrillation [None]
  - Blood creatinine increased [None]
